FAERS Safety Report 8641399 (Version 2)
Quarter: 2014Q4

REPORT INFORMATION
  Report Type: Spontaneous
  Country: US (occurrence: US)
  Receive Date: 20120628
  Receipt Date: 20141104
  Transmission Date: 20150529
  Serious: Yes (Hospitalization, Other)
  Sender: FDA-Public Use
  Company Number: US-ROCHE-784528

PATIENT
  Age: 27 Year
  Sex: Male
  Weight: 69.92 kg

DRUGS (2)
  1. MOTRIN [Concomitant]
     Active Substance: IBUPROFEN
     Indication: PAIN
  2. ACCUTANE [Suspect]
     Active Substance: ISOTRETINOIN
     Indication: ACNE
     Route: 048
     Dates: start: 200110, end: 200310

REACTIONS (6)
  - Emotional distress [Unknown]
  - Large intestine polyp [Unknown]
  - Anaemia [Unknown]
  - Osteoporosis [Unknown]
  - Colitis ulcerative [Not Recovered/Not Resolved]
  - Inflammatory bowel disease [Unknown]

NARRATIVE: CASE EVENT DATE: 200505
